FAERS Safety Report 9054842 (Version 3)
Quarter: 2013Q4

REPORT INFORMATION
  Report Type: Report from Study
  Country: US (occurrence: US)
  Receive Date: 20130208
  Receipt Date: 20131030
  Transmission Date: 20140711
  Serious: Yes (Other)
  Sender: FDA-Public Use
  Company Number: US-NAPPMUNDI-USA-2013-0098428

PATIENT
  Age: 60 Year
  Sex: Female
  Weight: 57.6 kg

DRUGS (1)
  1. OXYCONTIN (NDA 22-272) [Suspect]
     Indication: PAIN
     Dosage: 60 MG, TID
     Route: 048

REACTIONS (22)
  - Ocular hyperaemia [Unknown]
  - Nightmare [Not Recovered/Not Resolved]
  - Neck pain [Unknown]
  - Tenderness [Unknown]
  - Lethargy [Unknown]
  - Dysarthria [Unknown]
  - Chills [Unknown]
  - Nausea [Unknown]
  - Vomiting [Unknown]
  - Overdose [Unknown]
  - Substance abuse [Unknown]
  - Road traffic accident [Recovered/Resolved]
  - Head injury [Unknown]
  - Rectal haemorrhage [Not Recovered/Not Resolved]
  - Blood urine [Not Recovered/Not Resolved]
  - Laceration [Unknown]
  - Impaired driving ability [Unknown]
  - Drug withdrawal syndrome [Not Recovered/Not Resolved]
  - Feeling of body temperature change [Unknown]
  - Sleep attacks [Unknown]
  - Slow speech [Unknown]
  - Lacrimation increased [Unknown]
